FAERS Safety Report 6429620-X (Version None)
Quarter: 2009Q4

REPORT INFORMATION
  Report Type: 
  Country: None (occurrence: None)
  Receive Date: 20091103
  Receipt Date: 20091019
  Transmission Date: 20100525
  Serious: Yes (Hospitalization)
  Sender: FDA-Public Use
  Company Number: 02100-JPN-06-0063

PATIENT
  Age: 59 Year
  Sex: Male
  Weight: 59 kg

DRUGS (9)
  1. PLETAL [Suspect]
     Indication: CEREBRAL INFARCTION
     Dosage: 100 MG, BID, ORAL
     Route: 048
     Dates: start: 20040926, end: 20060217
  2. BLOPRESS (CANDESARTAN CILEXETIL) TABLET [Concomitant]
  3. NORVASC [Concomitant]
  4. LORAZEPAM [Concomitant]
  5. LUVOX (FLUVOXAMINE MALEATE) TABLET [Concomitant]
  6. ABILIT (SULPIRIDE) TABLET [Concomitant]
  7. SILECE (FLUNITRAZEPAM) TABLET [Concomitant]
  8. LENDORMIN (BROTIZOLAM) TABLET [Concomitant]
  9. ZOLPIDEM TARTRATE [Concomitant]

REACTIONS (2)
  - ANAEMIA [None]
  - DIVERTICULUM INTESTINAL HAEMORRHAGIC [None]
